FAERS Safety Report 17513609 (Version 1)
Quarter: 2020Q1

REPORT INFORMATION
  Report Type: Spontaneous
  Country: US (occurrence: US)
  Receive Date: 20200306
  Receipt Date: 20200306
  Transmission Date: 20200409
  Serious: Yes (Other)
  Sender: FDA-Public Use
  Company Number: US-009507513-2003USA001233

PATIENT
  Age: 60 Year
  Sex: Male

DRUGS (9)
  1. PREDNISONE. [Concomitant]
     Active Substance: PREDNISONE
     Dosage: EVERY 4 WEEKS
  2. REPATHA [Suspect]
     Active Substance: EVOLOCUMAB
     Indication: HYPERLIPIDAEMIA
     Dosage: 140 MILLIGRAM, EVERY 2 WEEKS
     Route: 058
     Dates: start: 20190519
  3. REPATHA [Suspect]
     Active Substance: EVOLOCUMAB
     Indication: TYPE V HYPERLIPIDAEMIA
  4. REPATHA [Suspect]
     Active Substance: EVOLOCUMAB
     Indication: HYPERCHOLESTEROLAEMIA
     Dosage: UNK
     Route: 058
     Dates: start: 201906
  5. HYDROCORTISONE. [Concomitant]
     Active Substance: HYDROCORTISONE
  6. JANUVIA [Suspect]
     Active Substance: SITAGLIPTIN PHOSPHATE
     Indication: BLOOD GLUCOSE INCREASED
     Dosage: UNK
     Route: 048
     Dates: end: 201908
  7. METFORMIN [Suspect]
     Active Substance: METFORMIN HYDROCHLORIDE
     Indication: BLOOD GLUCOSE INCREASED
     Dosage: UNK
  8. GLOBULIN, IMMUNE [Concomitant]
     Active Substance: HUMAN IMMUNOGLOBULIN G
     Dosage: EVERY 4 WEEKS
     Route: 042
  9. GAMMAGARD [Concomitant]
     Active Substance: HUMAN IMMUNOGLOBULIN G
     Indication: POLYMYOSITIS
     Dosage: EVERY 4 WEEKS

REACTIONS (16)
  - Memory impairment [Unknown]
  - Blood glucose decreased [Unknown]
  - Stent placement [Unknown]
  - Hepatic enzyme increased [Unknown]
  - Vision blurred [Unknown]
  - Myalgia [Unknown]
  - Blood glucose increased [Unknown]
  - Chest pain [Unknown]
  - Blood creatine phosphokinase increased [Unknown]
  - Muscle spasms [Unknown]
  - Rhinorrhoea [Recovered/Resolved]
  - Injection site pain [Unknown]
  - Immune system disorder [Unknown]
  - Hepatic enzyme decreased [Unknown]
  - Blood triglycerides increased [Unknown]
  - Pain [Unknown]

NARRATIVE: CASE EVENT DATE: 2019
